FAERS Safety Report 6867105-7 (Version None)
Quarter: 2010Q3

REPORT INFORMATION
  Report Type: 
  Country: None (occurrence: None)
  Receive Date: 20100722
  Receipt Date: 20100702
  Transmission Date: 20110219
  Serious: Yes (Other)
  Sender: FDA-Public Use
  Company Number: A0869139A

PATIENT
  Sex: Female
  Weight: 55 kg

DRUGS (1)
  1. PAROXETINE HCL [Suspect]
     Indication: DEPRESSION
     Dates: start: 20100401

REACTIONS (2)
  - ENZYME ABNORMALITY [None]
  - HYPERBILIRUBINAEMIA [None]
